FAERS Safety Report 5987861-X (Version None)
Quarter: 2008Q4

REPORT INFORMATION
  Report Type: 
  Country: None (occurrence: None)
  Receive Date: 20081209
  Receipt Date: 20080128
  Transmission Date: 20090506
  Serious: No
  Sender: FDA-Public Use
  Company Number: US-TYCO HEALTHCARE/MALLINCKRODT-T200800116

PATIENT

DRUGS (1)
  1. ULTRA-TECHNEKOW [Suspect]
     Indication: RADIOISOTOPE SCAN
     Dosage: UNK, SINGLE
     Dates: start: 20080128, end: 20080128

REACTIONS (1)
  - MEDICATION ERROR [None]
